FAERS Safety Report 12387085 (Version 1)
Quarter: 2016Q2

REPORT INFORMATION
  Report Type: Spontaneous
  Country: US (occurrence: US)
  Receive Date: 20160519
  Receipt Date: 20160519
  Transmission Date: 20160815
  Serious: No
  Sender: FDA-Public Use
  Company Number: US-JNJFOC-20160319791

PATIENT
  Age: 80 Year
  Sex: Male
  Weight: 73.03 kg

DRUGS (2)
  1. DARZALEX [Suspect]
     Active Substance: DARATUMUMAB
     Indication: PLASMA CELL MYELOMA
     Dosage: DOSE OF 1174 MG
     Route: 042
     Dates: start: 20160222
  2. DARZALEX [Suspect]
     Active Substance: DARATUMUMAB
     Indication: PLASMACYTOMA
     Dosage: DOSE OF 1174 MG
     Route: 042
     Dates: start: 20160222

REACTIONS (13)
  - Hypoaesthesia [Unknown]
  - Pain [Unknown]
  - Insomnia [Unknown]
  - Restless legs syndrome [Unknown]
  - Nasal congestion [Recovered/Resolved]
  - Cough [Recovered/Resolved]
  - Feeling cold [Recovered/Resolved]
  - Back pain [Unknown]
  - Chest discomfort [Recovered/Resolved]
  - Productive cough [Recovered/Resolved]
  - Bone pain [Unknown]
  - Flank pain [Unknown]
  - Diarrhoea [Recovered/Resolved]

NARRATIVE: CASE EVENT DATE: 20160222
